FAERS Safety Report 4282995-2 (Version None)
Quarter: 2004Q1

REPORT INFORMATION
  Report Type: 
  Country: None (occurrence: None)
  Receive Date: 20040130
  Receipt Date: 20031225
  Transmission Date: 20041129
  Serious: Yes (Hospitalization)
  Sender: FDA-Public Use
  Company Number: WAES 0401USA00066

PATIENT
  Age: 73 Year
  Sex: Female

DRUGS (10)
  1. [THERAPY UNSPECIFIED] [Concomitant]
     Route: 048
     Dates: start: 19981201
  2. AMLODIN [Suspect]
     Indication: HYPERTENSION
     Route: 048
     Dates: start: 20001011, end: 20031128
  3. STRONGER NEO-MINOPHAGEN C [Concomitant]
     Route: 042
     Dates: start: 19960226
  4. PEPCID RPD [Suspect]
     Route: 048
     Dates: start: 19970827, end: 20031211
  5. DAIKENCHUTO [Suspect]
     Indication: PERITONITIS
     Route: 048
     Dates: start: 20031201, end: 20031211
  6. HUMACART [Concomitant]
     Route: 042
     Dates: start: 20010301, end: 20031128
  7. NUTRITIONAL SUPPLEMENTS [Concomitant]
     Indication: HEPATIC FAILURE
     Route: 048
     Dates: start: 20031202
  8. ALDACTONE [Concomitant]
     Route: 048
     Dates: start: 19981201
  9. ULCERMIN [Suspect]
     Indication: PERITONITIS
     Route: 048
     Dates: start: 19970827, end: 20031128
  10. URSO [Concomitant]
     Route: 048
     Dates: start: 19960325

REACTIONS (5)
  - ANURIA [None]
  - FLUID RETENTION [None]
  - HYPOTENSION [None]
  - PANCYTOPENIA [None]
  - PERITONITIS [None]
